FAERS Safety Report 20317886 (Version 1)
Quarter: 2022Q1

REPORT INFORMATION
  Report Type: Spontaneous
  Country: US (occurrence: None)
  Receive Date: 20220108
  Receipt Date: 20220108
  Transmission Date: 20220423
  Serious: No
  Sender: FDA-Public Use
  Company Number: None

PATIENT
  Age: 58 Year
  Sex: Male
  Weight: 65.25 kg

DRUGS (1)
  1. ARESTIN [Suspect]
     Active Substance: MINOCYCLINE HYDROCHLORIDE
     Indication: Periodontal disease
     Dosage: OTHER QUANTITY : 5 METERED DOSES;?OTHER FREQUENCY : PERIODIC TREATMENT;?OTHER ROUTE : INJECTED IN PO
     Route: 050
     Dates: start: 20220107, end: 20220107

REACTIONS (1)
  - Diarrhoea [None]

NARRATIVE: CASE EVENT DATE: 20220107
